FAERS Safety Report 6360876-8 (Version None)
Quarter: 2009Q3

REPORT INFORMATION
  Report Type: 
  Country: None (occurrence: None)
  Receive Date: 20090915
  Receipt Date: 20090915
  Transmission Date: 20100115
  Serious: No
  Sender: FDA-Public Use
  Company Number: None

PATIENT
  Age: 38 Year
  Sex: Female

DRUGS (1)
  1. LAMICTAL [Suspect]

REACTIONS (4)
  - DEPRESSION [None]
  - PRODUCT SUBSTITUTION ISSUE [None]
  - RASH [None]
  - SUICIDAL IDEATION [None]
